FAERS Safety Report 15621370 (Version 1)
Quarter: 2018Q4

REPORT INFORMATION
  Report Type: Spontaneous
  Country: AT (occurrence: AT)
  Receive Date: 20181115
  Receipt Date: 20181115
  Transmission Date: 20190205
  Serious: Yes (Hospitalization)
  Sender: FDA-Public Use
  Company Number: AT-CELGENEUS-AUT-20181101539

PATIENT
  Age: 67 Year
  Sex: Male

DRUGS (15)
  1. DEXAMETHASONE. [Concomitant]
     Active Substance: DEXAMETHASONE
     Indication: PLASMA CELL MYELOMA
     Dosage: HIGH DOSE
     Route: 065
     Dates: start: 20170925, end: 20170928
  2. DEXAMETHASONE. [Concomitant]
     Active Substance: DEXAMETHASONE
     Dosage: VRD
     Route: 065
     Dates: start: 201710, end: 201801
  3. VELCADE [Concomitant]
     Active Substance: BORTEZOMIB
     Indication: PLASMA CELL MYELOMA
     Dosage: VRD
     Route: 065
     Dates: start: 20181003
  4. KYPROLIS [Concomitant]
     Active Substance: CARFILZOMIB
     Indication: PLASMA CELL MYELOMA
     Dosage: KD
     Route: 065
     Dates: start: 201805
  5. IXAZOMIB [Concomitant]
     Active Substance: IXAZOMIB
     Dosage: DOSE MODIFICATION
     Route: 065
  6. DEXAMETHASONE. [Concomitant]
     Active Substance: DEXAMETHASONE
     Dosage: IRD
     Route: 065
     Dates: start: 201802
  7. IXAZOMIB [Concomitant]
     Active Substance: IXAZOMIB
     Indication: PLASMA CELL MYELOMA
     Dosage: IRD
     Route: 065
     Dates: start: 201802
  8. REVLIMID [Suspect]
     Active Substance: LENALIDOMIDE
     Dosage: DOSE MODIFICATION
     Route: 048
  9. REVLIMID [Suspect]
     Active Substance: LENALIDOMIDE
     Dosage: VRD
     Route: 048
     Dates: start: 201710, end: 201801
  10. REVLIMID [Suspect]
     Active Substance: LENALIDOMIDE
     Dosage: IRD
     Route: 048
     Dates: start: 201802
  11. DEXAMETHASONE. [Concomitant]
     Active Substance: DEXAMETHASONE
     Dosage: KD
     Route: 065
     Dates: start: 201805
  12. REVLIMID [Suspect]
     Active Substance: LENALIDOMIDE
     Indication: PLASMA CELL MYELOMA
     Dosage: VRD
     Route: 048
     Dates: start: 20181003
  13. REVLIMID [Suspect]
     Active Substance: LENALIDOMIDE
     Dosage: VRD
     Route: 048
  14. VELCADE [Concomitant]
     Active Substance: BORTEZOMIB
     Dosage: VRD
     Route: 065
     Dates: start: 201710, end: 201801
  15. DEXAMETHASONE. [Concomitant]
     Active Substance: DEXAMETHASONE
     Dosage: VRD
     Route: 065
     Dates: start: 20181003

REACTIONS (5)
  - Acute pulmonary oedema [Unknown]
  - Plasma cell myeloma [Unknown]
  - Arthralgia [Recovering/Resolving]
  - Osteoarthritis [Unknown]
  - Acute chest syndrome [Unknown]

NARRATIVE: CASE EVENT DATE: 201804
